FAERS Safety Report 17526814 (Version 1)
Quarter: 2020Q1

REPORT INFORMATION
  Report Type: Spontaneous
  Country: US (occurrence: US)
  Receive Date: 20200311
  Receipt Date: 20200311
  Transmission Date: 20200409
  Serious: Yes (Hospitalization)
  Sender: FDA-Public Use
  Company Number: None

PATIENT
  Age: 61 Year
  Sex: Female

DRUGS (22)
  1. CLONAZEPAM. [Concomitant]
     Active Substance: CLONAZEPAM
  2. LORAZEPAM. [Concomitant]
     Active Substance: LORAZEPAM
  3. SILDENAFIL. [Concomitant]
     Active Substance: SILDENAFIL
  4. ZOLPIDEM [Concomitant]
     Active Substance: ZOLPIDEM TARTRATE
  5. MORPHINE [Concomitant]
     Active Substance: MORPHINE
  6. TORSEMIDE. [Concomitant]
     Active Substance: TORSEMIDE
  7. GABAPENTIN. [Concomitant]
     Active Substance: GABAPENTIN
  8. POT CHLORIDE [Concomitant]
     Active Substance: POTASSIUM CHLORIDE
  9. TADALAFIL. [Concomitant]
     Active Substance: TADALAFIL
  10. HUMIRA [Suspect]
     Active Substance: ADALIMUMAB
     Indication: CROHN^S DISEASE
     Dosage: ?          OTHER FREQUENCY:QOWK;?
     Route: 058
     Dates: start: 20160224
  11. CEFPDOXIME [Concomitant]
  12. HYDROXYCHLOR [Concomitant]
     Active Substance: HYDROXYCHLOROQUINE
  13. IPRATROPIUM [Concomitant]
     Active Substance: IPRATROPIUM
  14. LEFLUNOMIDE. [Concomitant]
     Active Substance: LEFLUNOMIDE
  15. LEVOTHYROXIN [Concomitant]
     Active Substance: LEVOTHYROXINE
  16. OMEPRAZOLE. [Concomitant]
     Active Substance: OMEPRAZOLE
  17. TERBINAFINE. [Concomitant]
     Active Substance: TERBINAFINE
  18. HYDROXY/APAP [Concomitant]
  19. LITHIUM CARB [Concomitant]
     Active Substance: LITHIUM CARBONATE
  20. PREDNISONE. [Concomitant]
     Active Substance: PREDNISONE
  21. QUETIAPINE. [Concomitant]
     Active Substance: QUETIAPINE
  22. LETAIRIS [Concomitant]
     Active Substance: AMBRISENTAN

REACTIONS (4)
  - Acute cardiac event [None]
  - Quality of life decreased [None]
  - Condition aggravated [None]
  - Pneumonia [None]

NARRATIVE: CASE EVENT DATE: 20200207
